FAERS Safety Report 6587333-8 (Version None)
Quarter: 2010Q1

REPORT INFORMATION
  Report Type: 
  Country: None (occurrence: None)
  Receive Date: 20100217
  Receipt Date: 20090515
  Transmission Date: 20100710
  Serious: No
  Sender: FDA-Public Use
  Company Number: US-ALLERGAN-0906777US

PATIENT
  Age: 55 Year
  Sex: Female

DRUGS (5)
  1. BOTOX COSMETIC [Suspect]
     Indication: SKIN WRINKLING
     Dosage: 20 UNITS, SINGLE
     Route: 030
     Dates: start: 20090413, end: 20090413
  2. JUVEDERM ULTRA [Suspect]
     Indication: SKIN WRINKLING
  3. RESTYLANE [Suspect]
     Indication: SKIN WRINKLING
  4. HORMONES NOS [Concomitant]
  5. LUNESTA [Concomitant]
     Indication: INSOMNIA

REACTIONS (2)
  - INFLUENZA LIKE ILLNESS [None]
  - RASH [None]
